FAERS Safety Report 8757768 (Version 1)
Quarter: 2012Q4

REPORT INFORMATION
  Report Type: 
  Country: IT (occurrence: IT)
  Receive Date: 20120828
  Receipt Date: 20120828
  Transmission Date: 20130627
  Serious: Yes (Hospitalization)
  Sender: FDA-Public Use
  Company Number: IT-GILEAD-2012-0060281

PATIENT
  Age: 74 Year
  Sex: Male

DRUGS (8)
  1. RANOLAZINE [Suspect]
     Indication: ANGINA PECTORIS
     Dosage: 1000 mg, QD
     Dates: start: 20120301
  2. VALSARTAN [Suspect]
     Indication: HYPERTENSION
     Dosage: 50 mg, QD
     Route: 048
     Dates: start: 20120101
  3. ATENOLOL [Suspect]
     Indication: HYPERTENSION
     Dosage: 50 mg, QD
     Route: 048
     Dates: start: 20080101, end: 20120724
  4. MODURETIC [Suspect]
     Indication: HYPERTENSION
     Dosage: UNK
     Dates: start: 20110101, end: 20120724
  5. ADALAT [Suspect]
     Indication: MYOCARDIAL ISCHAEMIA
     Dosage: 30 mg, QD
     Route: 048
     Dates: start: 20110101
  6. ACIDO ACETILSALICILICO [Concomitant]
     Indication: CARDIOVASCULAR EVENT PROPHYLAXIS
     Dosage: 100 mg, QD
     Route: 048
  7. ESKIM [Concomitant]
     Indication: DYSLIPIDAEMIA
     Dosage: 2000 mg, QD
     Route: 048
  8. PANTORC [Concomitant]
     Indication: PROPHYLAXIS
     Dosage: 40 mg, QD
     Route: 048

REACTIONS (2)
  - Presyncope [Recovered/Resolved]
  - Sinus bradycardia [Recovered/Resolved]
